FAERS Safety Report 13123192 (Version 1)
Quarter: 2017Q1

REPORT INFORMATION
  Report Type: Spontaneous
  Country: NL (occurrence: NL)
  Receive Date: 20170117
  Receipt Date: 20170117
  Transmission Date: 20170428
  Serious: Yes (Hospitalization, Congenital Anomaly)
  Sender: FDA-Public Use
  Company Number: NL-UNICHEM LABORATORIES LIMITED-UCM201701-000003

PATIENT
  Sex: Male
  Weight: 3.1 kg

DRUGS (2)
  1. DIVALPROEX SODIUM. [Suspect]
     Active Substance: DIVALPROEX SODIUM
  2. DIVALPROEX SODIUM. [Suspect]
     Active Substance: DIVALPROEX SODIUM
     Indication: MYOCLONIC EPILEPSY

REACTIONS (8)
  - Foetal exposure during pregnancy [Unknown]
  - Withdrawal syndrome [Recovered/Resolved]
  - Toxicity to various agents [Unknown]
  - Hypoglycaemia [Recovered/Resolved]
  - Apnoea [Recovered/Resolved]
  - Foetal anticonvulsant syndrome [Not Recovered/Not Resolved]
  - Bradycardia [Recovered/Resolved]
  - Tremor [Recovered/Resolved]
